FAERS Safety Report 13666767 (Version 1)
Quarter: 2017Q2

REPORT INFORMATION
  Report Type: Spontaneous
  Country: US (occurrence: US)
  Receive Date: 20170619
  Receipt Date: 20170619
  Transmission Date: 20170830
  Serious: No
  Sender: FDA-Public Use
  Company Number: US-ROCHE-1361118

PATIENT
  Sex: Female

DRUGS (4)
  1. XELODA [Suspect]
     Active Substance: CAPECITABINE
     Dosage: ONE WEEK ON, ONE WEEK OFF
     Route: 048
     Dates: start: 2012
  2. XANAX [Concomitant]
     Active Substance: ALPRAZOLAM
     Route: 065
     Dates: start: 2011
  3. XELODA [Suspect]
     Active Substance: CAPECITABINE
     Indication: BREAST CANCER
     Dosage: TWO WEEKS ON, ONE WEEK OFF
     Route: 048
     Dates: start: 201205
  4. SEROQUEL [Concomitant]
     Active Substance: QUETIAPINE FUMARATE
     Route: 065
     Dates: start: 2011

REACTIONS (7)
  - Rhinorrhoea [Not Recovered/Not Resolved]
  - Fatigue [Unknown]
  - Balance disorder [Recovered/Resolved]
  - Eye irritation [Not Recovered/Not Resolved]
  - Skin fissures [Recovered/Resolved]
  - Contusion [Recovered/Resolved]
  - Visual impairment [Not Recovered/Not Resolved]
